FAERS Safety Report 16082667 (Version 1)
Quarter: 2019Q1

REPORT INFORMATION
  Report Type: Spontaneous
  Country: US (occurrence: US)
  Receive Date: 20190318
  Receipt Date: 20190318
  Transmission Date: 20190418
  Serious: No
  Sender: FDA-Public Use
  Company Number: US-ZYDUS-020128

PATIENT
  Sex: Female

DRUGS (4)
  1. LAMOTRIGINE. [Suspect]
     Active Substance: LAMOTRIGINE
     Indication: ANXIETY
     Dosage: VARIES
     Route: 048
     Dates: start: 20180323, end: 20180502
  2. VALACICLOVIR [Concomitant]
     Active Substance: VALACYCLOVIR HYDROCHLORIDE
     Indication: ORAL HERPES
     Route: 065
  3. LAMOTRIGINE. [Suspect]
     Active Substance: LAMOTRIGINE
     Indication: ANXIETY
     Dosage: VARIES
     Route: 048
     Dates: start: 20180503
  4. TOPIRAMATE. [Concomitant]
     Active Substance: TOPIRAMATE
     Indication: PRODUCT USED FOR UNKNOWN INDICATION
     Route: 065

REACTIONS (16)
  - Feeling hot [Not Recovered/Not Resolved]
  - Myalgia [Unknown]
  - Pain [Unknown]
  - Allergic reaction to excipient [Not Recovered/Not Resolved]
  - Nuchal rigidity [Unknown]
  - Product use in unapproved indication [Not Recovered/Not Resolved]
  - Lymph node pain [Not Recovered/Not Resolved]
  - Somnolence [Unknown]
  - Acne [Not Recovered/Not Resolved]
  - Influenza like illness [Not Recovered/Not Resolved]
  - Oral herpes [Not Recovered/Not Resolved]
  - Cough [Not Recovered/Not Resolved]
  - Skin reaction [Not Recovered/Not Resolved]
  - Discharge [Not Recovered/Not Resolved]
  - Sinusitis [Not Recovered/Not Resolved]
  - Lymphadenopathy [Not Recovered/Not Resolved]

NARRATIVE: CASE EVENT DATE: 20180323
